FAERS Safety Report 13118787 (Version 2)
Quarter: 2017Q1

REPORT INFORMATION
  Report Type: Spontaneous
  Country: CZ (occurrence: CZ)
  Receive Date: 20170116
  Receipt Date: 20170131
  Transmission Date: 20170428
  Serious: Yes (Death)
  Sender: FDA-Public Use
  Company Number: CZ-MYLANLABS-2017M1002091

PATIENT

DRUGS (4)
  1. QUETIAPIN MYLAN 25 MG POTAHOVAN? TABLETY [Suspect]
     Active Substance: QUETIAPINE
     Indication: DEPRESSION
     Dosage: 0-0-0-3 BEFORE SLEEPING
     Dates: end: 20161214
  2. MIRTAZAPIN SANDOZ  45 MG [Suspect]
     Active Substance: MIRTAZAPINE
     Indication: DEPRESSION
     Dosage: 0-0-1
     Dates: end: 20161214
  3. NEUROL 0.25 [Suspect]
     Active Substance: ALPRAZOLAM
     Indication: DEPRESSION
     Dosage: 2-2-2
     Dates: start: 20160906, end: 20161214
  4. ZOLOFT [Suspect]
     Active Substance: SERTRALINE HYDROCHLORIDE
     Indication: DEPRESSION
     Dosage: 1/2-0-0
     Dates: end: 20161214

REACTIONS (4)
  - Poor quality sleep [Unknown]
  - Drug ineffective [Unknown]
  - Completed suicide [Fatal]
  - Depression [Fatal]

NARRATIVE: CASE EVENT DATE: 20161214
